FAERS Safety Report 18222642 (Version 1)
Quarter: 2020Q3

REPORT INFORMATION
  Report Type: Spontaneous
  Country: US (occurrence: US)
  Receive Date: 20200902
  Receipt Date: 20200902
  Transmission Date: 20201103
  Serious: No
  Sender: FDA-Public Use
  Company Number: US-ALVOGEN-2019-ALVOGEN-101155

PATIENT
  Sex: Female

DRUGS (2)
  1. CELECOXIB. [Suspect]
     Active Substance: CELECOXIB
     Indication: PRODUCT USED FOR UNKNOWN INDICATION
  2. CLINDAMYCIN. [Suspect]
     Active Substance: CLINDAMYCIN
     Indication: PRODUCT USED FOR UNKNOWN INDICATION

REACTIONS (6)
  - Tooth loss [Unknown]
  - Dysphagia [Unknown]
  - Limb discomfort [Unknown]
  - Tooth fracture [Unknown]
  - Ear haemorrhage [Unknown]
  - Lymphadenopathy [Unknown]
